FAERS Safety Report 9651915 (Version 2)
Quarter: 2014Q1

REPORT INFORMATION
  Report Type: Spontaneous
  Country: US (occurrence: US)
  Receive Date: 20131029
  Receipt Date: 20140204
  Transmission Date: 20141002
  Serious: No
  Sender: FDA-Public Use
  Company Number: US-009507513-1310USA013248

PATIENT
  Age: 53 Year
  Sex: Female
  Weight: 47.17 kg

DRUGS (1)
  1. ZEGERID OTC CAPSULES [Suspect]
     Indication: GASTROOESOPHAGEAL REFLUX DISEASE
     Dosage: 20 MG, QAM
     Route: 048
     Dates: start: 20130927, end: 20131010

REACTIONS (1)
  - Drug ineffective [Unknown]
